FAERS Safety Report 23387090 (Version 1)
Quarter: 2024Q1

REPORT INFORMATION
  Report Type: Spontaneous
  Country: US (occurrence: US)
  Receive Date: 20240110
  Receipt Date: 20240110
  Transmission Date: 20240410
  Serious: Yes (Other)
  Sender: FDA-Public Use
  Company Number: US-SA-SAC20240110000863

PATIENT
  Sex: Female
  Weight: 129 kg

DRUGS (2)
  1. KEVZARA [Suspect]
     Active Substance: SARILUMAB
     Indication: Rheumatoid factor
     Dosage: 200 MG, QOW
     Route: 058
  2. TYLENOL [Concomitant]
     Active Substance: ACETAMINOPHEN
     Dosage: UNK

REACTIONS (3)
  - Atrial fibrillation [Unknown]
  - Swelling [Unknown]
  - Urinary tract infection [Unknown]
